FAERS Safety Report 15229606 (Version 2)
Quarter: 2019Q1

REPORT INFORMATION
  Report Type: Spontaneous
  Country: US (occurrence: US)
  Receive Date: 20180802
  Receipt Date: 20190314
  Transmission Date: 20190417
  Serious: Yes (Life-Threatening, Hospitalization)
  Sender: FDA-Public Use
  Company Number: US-SUN PHARMACEUTICAL INDUSTRIES LTD-2018US-180183

PATIENT
  Age: 32 Year
  Sex: Female

DRUGS (1)
  1. LOPERAMIDE [Suspect]
     Active Substance: LOPERAMIDE
     Indication: PRODUCT USED FOR UNKNOWN INDICATION
     Dosage: UP TO 200 TABLETS DAILY
     Route: 065

REACTIONS (9)
  - Ventricular extrasystoles [Recovering/Resolving]
  - Intentional overdose [Recovering/Resolving]
  - Sinus bradycardia [Recovering/Resolving]
  - Drug abuse [Recovering/Resolving]
  - Ventricular tachycardia [Recovering/Resolving]
  - Abdominal pain [Unknown]
  - Vomiting [Recovering/Resolving]
  - Chest pain [Recovering/Resolving]
  - Electrocardiogram QT prolonged [Recovering/Resolving]
